FAERS Safety Report 4924286-X (Version None)
Quarter: 2006Q1

REPORT INFORMATION
  Report Type: 
  Country: None (occurrence: None)
  Receive Date: 20060227
  Receipt Date: 20060215
  Transmission Date: 20060701
  Serious: Yes (Death)
  Sender: FDA-Public Use
  Company Number: US-BRISTOL-MYERS SQUIBB COMPANY-13285960

PATIENT

DRUGS (2)
  1. ABILIFY [Suspect]
  2. MEGACE [Suspect]

REACTIONS (1)
  - DEATH [None]
